FAERS Safety Report 25528243 (Version 1)
Quarter: 2025Q3

REPORT INFORMATION
  Report Type: Spontaneous
  Country: US (occurrence: US)
  Receive Date: 20250708
  Receipt Date: 20250708
  Transmission Date: 20251020
  Serious: Yes (Other)
  Sender: RANBAXY
  Company Number: US-SUN PHARMACEUTICAL INDUSTRIES LTD-2025R1-515313

PATIENT
  Age: 73 Year
  Sex: Female

DRUGS (1)
  1. FLUOROURACIL [Suspect]
     Active Substance: FLUOROURACIL
     Indication: Skin cancer
     Dosage: UNK, QD
     Route: 061
     Dates: start: 20250530, end: 20250617

REACTIONS (8)
  - Haemoptysis [Unknown]
  - Blister [Unknown]
  - Scab [Unknown]
  - Lip haemorrhage [Unknown]
  - Chapped lips [Unknown]
  - Lip swelling [Unknown]
  - Eating disorder [Unknown]
  - Fatigue [Unknown]

NARRATIVE: CASE EVENT DATE: 20250616
